FAERS Safety Report 25579161 (Version 2)
Quarter: 2025Q4

REPORT INFORMATION
  Report Type: Spontaneous
  Country: US (occurrence: US)
  Receive Date: 20250718
  Receipt Date: 20251020
  Transmission Date: 20260118
  Serious: Yes (Other)
  Sender: LUNDBECK
  Company Number: US-LUNDBECK-DKLU4017146

PATIENT
  Age: 35 Year
  Sex: Female

DRUGS (1)
  1. VYEPTI [Suspect]
     Active Substance: EPTINEZUMAB-JJMR
     Indication: Product used for unknown indication
     Dosage: 300 MILLIGRAM
     Route: 041

REACTIONS (8)
  - Thrombosis [Unknown]
  - Intercostal neuralgia [Unknown]
  - Costochondritis [Unknown]
  - Migraine [Unknown]
  - Fall [Not Recovered/Not Resolved]
  - Joint injury [Unknown]
  - Balance disorder [Unknown]
  - Fatigue [Unknown]

NARRATIVE: CASE EVENT DATE: 20250101
